FAERS Safety Report 5155601-2 (Version None)
Quarter: 2006Q4

REPORT INFORMATION
  Report Type: 
  Country: None (occurrence: None)
  Receive Date: 20061114
  Receipt Date: 20060905
  Transmission Date: 20070319
  Serious: Yes (Other)
  Sender: FDA-Public Use
  Company Number: 2006108670

PATIENT
  Age: 44 Year
  Sex: Female
  Weight: 101.1521 kg

DRUGS (1)
  1. VIAGRA [Suspect]
     Indication: ERECTILE DYSFUNCTION
     Dosage: 25 MG, ORAL
     Route: 048

REACTIONS (4)
  - DRUG INEFFECTIVE [None]
  - EYE PAIN [None]
  - PHOTOPHOBIA [None]
  - VISUAL ACUITY REDUCED [None]
